FAERS Safety Report 4353827-9 (Version None)
Quarter: 2004Q2

REPORT INFORMATION
  Report Type: 
  Country: None (occurrence: None)
  Receive Date: 20040430
  Receipt Date: 20040419
  Transmission Date: 20050107
  Serious: Yes (Other)
  Sender: FDA-Public Use
  Company Number: FR-JNJFOC-20040404523

PATIENT
  Age: 78 Year
  Sex: Female

DRUGS (2)
  1. RISPERDAL [Suspect]
     Indication: AGITATION
     Dosage: 1 MG, IN 1 DAY, ORAL
     Route: 048
  2. REMINYL [Concomitant]

REACTIONS (2)
  - PHLEBITIS [None]
  - SALIVARY HYPERSECRETION [None]
